FAERS Safety Report 12812468 (Version 17)
Quarter: 2021Q4

REPORT INFORMATION
  Report Type: Spontaneous
  Country: US (occurrence: None)
  Receive Date: 20161005
  Receipt Date: 20211117
  Transmission Date: 20220304
  Serious: Yes (Hospitalization)
  Sender: FDA-Public Use
  Company Number: US-EISAI MEDICAL RESEARCH-EC-2016-020887

PATIENT
  Age: 64 Year
  Sex: Female

DRUGS (15)
  1. FYCOMPA [Suspect]
     Active Substance: PERAMPANEL
     Indication: Partial seizures
     Route: 048
     Dates: start: 201609, end: 201609
  2. FYCOMPA [Suspect]
     Active Substance: PERAMPANEL
     Route: 048
     Dates: start: 201609, end: 2020
  3. FYCOMPA [Suspect]
     Active Substance: PERAMPANEL
     Route: 048
     Dates: start: 2020, end: 2020
  4. FYCOMPA [Suspect]
     Active Substance: PERAMPANEL
     Route: 048
     Dates: start: 2020
  5. FYCOMPA [Suspect]
     Active Substance: PERAMPANEL
     Route: 048
     Dates: end: 202104
  6. FYCOMPA [Suspect]
     Active Substance: PERAMPANEL
     Dosage: TAKING 4 MG SOMETIMES OR 6 MG
     Route: 048
     Dates: start: 202104, end: 2021
  7. FYCOMPA [Suspect]
     Active Substance: PERAMPANEL
     Route: 048
     Dates: start: 2021
  8. CITALOPRAM [Suspect]
     Active Substance: CITALOPRAM HYDROBROMIDE
     Indication: Depression
     Dosage: DOSE AND FREQUENCY UNKNOWN
     Route: 048
     Dates: end: 201611
  9. CITALOPRAM [Suspect]
     Active Substance: CITALOPRAM HYDROBROMIDE
     Dosage: WEANED OFF (DOSING AND FREQUENCY UNSPECIFIED)
     Route: 048
     Dates: start: 201611, end: 201611
  10. METFORMIN [Suspect]
     Active Substance: METFORMIN HYDROCHLORIDE
     Indication: Diabetes mellitus
     Route: 065
  11. LOVASTATIN [Concomitant]
     Active Substance: LOVASTATIN
     Indication: Blood cholesterol increased
     Route: 048
  12. OXYBUTYNIN [Concomitant]
     Active Substance: OXYBUTYNIN
     Indication: Urinary incontinence
     Dosage: DOSE AND FREQUENCY UNKNOWN
     Route: 048
     Dates: start: 201609, end: 201705
  13. OMEPRAZOLE [Concomitant]
     Active Substance: OMEPRAZOLE
     Indication: Dyspepsia
     Dosage: DOSE AND FREQUENCY UNKNOWN
     Route: 048
     Dates: start: 201705
  14. SERTRALINE [Concomitant]
     Active Substance: SERTRALINE HYDROCHLORIDE
     Indication: Depression
     Route: 065
     Dates: start: 20170305
  15. PANTOPRAZOLE [Concomitant]
     Active Substance: PANTOPRAZOLE
     Indication: Product used for unknown indication
     Route: 065

REACTIONS (28)
  - Paranoia [Recovered/Resolved]
  - Mood altered [Recovered/Resolved]
  - Urticaria [Not Recovered/Not Resolved]
  - Pruritus [Recovering/Resolving]
  - Alopecia [Unknown]
  - Cyst [Recovered/Resolved]
  - Seborrhoeic dermatitis [Not Recovered/Not Resolved]
  - Skin discolouration [Not Recovered/Not Resolved]
  - Hair growth abnormal [Not Recovered/Not Resolved]
  - Dry skin [Not Recovered/Not Resolved]
  - Furuncle [Not Recovered/Not Resolved]
  - Gait disturbance [Recovered/Resolved]
  - Vertigo [Recovered/Resolved]
  - Weight increased [Not Recovered/Not Resolved]
  - Somnolence [Not Recovered/Not Resolved]
  - Fall [Unknown]
  - Hiatus hernia [Not Recovered/Not Resolved]
  - Blood glucose increased [Unknown]
  - Seizure [Unknown]
  - Dysarthria [Not Recovered/Not Resolved]
  - Disturbance in attention [Unknown]
  - Slow speech [Not Recovered/Not Resolved]
  - Fatigue [Not Recovered/Not Resolved]
  - Road traffic accident [Recovered/Resolved]
  - Hand fracture [Unknown]
  - Wrong technique in product usage process [Unknown]
  - Nerve compression [Unknown]
  - Migraine [Unknown]

NARRATIVE: CASE EVENT DATE: 20160101
